FAERS Safety Report 11549962 (Version 1)
Quarter: 2015Q3

REPORT INFORMATION
  Report Type: Spontaneous
  Country: US (occurrence: None)
  Receive Date: 20150924
  Receipt Date: 20150924
  Transmission Date: 20151125
  Serious: No
  Sender: FDA-Public Use
  Company Number: US-MDT-ADR-2015-01845

PATIENT
  Age: 58 Year
  Sex: Male

DRUGS (2)
  1. LIORESAL [Suspect]
     Active Substance: BACLOFEN
     Dosage: 740.7 MCG/DAY (FLEX)
  2. BACLOFEN ORAL [Suspect]
     Active Substance: BACLOFEN
     Dosage: 10 MG

REACTIONS (2)
  - Muscle spasticity [None]
  - Musculoskeletal stiffness [None]
